FAERS Safety Report 14501879 (Version 1)
Quarter: 2018Q1

REPORT INFORMATION
  Report Type: Spontaneous
  Country: CN (occurrence: CN)
  Receive Date: 20180207
  Receipt Date: 20180207
  Transmission Date: 20180509
  Serious: Yes (Other)
  Sender: FDA-Public Use
  Company Number: CN-BAXTER-2018BAX004221

PATIENT
  Age: 52 Year
  Sex: Female
  Weight: 52 kg

DRUGS (1)
  1. 20% MANNITOL INJECTION [Suspect]
     Active Substance: MANNITOL
     Indication: DIURETIC THERAPY
     Dosage: 50 GRAM IN 250 ML
     Route: 041
     Dates: start: 20171115, end: 20171118

REACTIONS (6)
  - Hyperhidrosis [Recovering/Resolving]
  - Chest discomfort [Recovering/Resolving]
  - Muscle strain [Unknown]
  - Dizziness [Recovering/Resolving]
  - Condition aggravated [Unknown]
  - Discomfort [Unknown]

NARRATIVE: CASE EVENT DATE: 20171118
